FAERS Safety Report 7533182-3 (Version None)
Quarter: 2011Q2

REPORT INFORMATION
  Report Type: 
  Country: None (occurrence: None)
  Receive Date: 20110608
  Receipt Date: 20100116
  Transmission Date: 20111010
  Serious: Yes (Death, Other)
  Sender: FDA-Public Use
  Company Number: US-BAYER-201011237NA

PATIENT
  Age: 61 Year
  Sex: Female
  Weight: 73 kg

DRUGS (28)
  1. BUMEX [Concomitant]
     Dosage: VARIED DOSE; IV/ ORAL
  2. MILRINONE [Concomitant]
     Dosage: TITRATED
     Route: 042
     Dates: start: 20050119
  3. HEPARIN [Concomitant]
     Dosage: UNK
     Route: 042
     Dates: start: 20050119, end: 20050119
  4. WARFARIN SODIUM [Concomitant]
     Dosage: 5 MG, QD
     Route: 048
  5. TRASYLOL [Suspect]
     Indication: TRICUSPID VALVE REPAIR
     Dosage: 50 CC/ HR
     Dates: start: 20050119, end: 20050119
  6. DOBUTAMINE HYDROCHLORIDE [Concomitant]
     Route: 042
  7. FRESH FROZEN PLASMA [Concomitant]
     Dosage: 5 U, UNK
  8. MIDAZOLAM [Concomitant]
     Dosage: 5 MG, UNK
     Route: 042
     Dates: start: 20050119, end: 20050119
  9. TRASYLOL [Suspect]
     Indication: MITRAL VALVE REPLACEMENT
     Dosage: TEST DOSE
     Dates: start: 20050119, end: 20050119
  10. DEMADEX [Concomitant]
     Dosage: UNK UNK, QD
     Route: 048
  11. LANTUS [Concomitant]
     Route: 058
  12. INSULIN 2 [Concomitant]
     Dosage: TITRATED
     Route: 042
     Dates: start: 20050119
  13. TRASYLOL [Suspect]
  14. COZAAR [Concomitant]
     Dosage: 25 MG, QD
  15. ACETYLSALICYLIC ACID SRT [Concomitant]
     Dosage: 81 MG, QD
     Route: 048
  16. PLATELETS [Concomitant]
     Dosage: 2 U, UNK
  17. LASIX [Concomitant]
     Dosage: VARIED DOSES; IV/ ORAL
  18. NEXIUM [Concomitant]
     Dosage: 40 MG, UNK
     Route: 048
  19. LISINOPRIL [Concomitant]
     Dosage: 10 MG, UNK
     Route: 048
  20. SPIRONOLACTONE [Concomitant]
     Dosage: 25 MG, QD
     Route: 048
  21. DIGOXIN [Concomitant]
     Dosage: 0.125 MG, QD
  22. ZESTRIL [Concomitant]
     Route: 048
  23. METFORMIN HCL [Concomitant]
     Dosage: 500 MG, QD
     Route: 048
  24. LOVENOX [Concomitant]
     Dosage: 80 MG, BID
     Route: 058
  25. NESIRITIDE [Concomitant]
     Route: 042
  26. ZAROXOLYN [Concomitant]
     Dosage: 5 MG, BID
     Route: 048
  27. ZETIA [Concomitant]
     Dosage: 10 MG, QD
     Route: 048
  28. PROTAMINE SULFATE [Concomitant]
     Dosage: UNK
     Route: 042
     Dates: start: 20050119, end: 20050119

REACTIONS (14)
  - RENAL FAILURE [None]
  - RENAL IMPAIRMENT [None]
  - CEREBROVASCULAR ACCIDENT [None]
  - ORGAN FAILURE [None]
  - PAIN [None]
  - DEPRESSION [None]
  - DEATH [None]
  - UNEVALUABLE EVENT [None]
  - FEAR [None]
  - CARDIAC DISORDER [None]
  - ANXIETY [None]
  - INJURY [None]
  - RENAL INJURY [None]
  - ANHEDONIA [None]
